FAERS Safety Report 7451108-8 (Version None)
Quarter: 2011Q2

REPORT INFORMATION
  Report Type: 
  Country: None (occurrence: None)
  Receive Date: 20110502
  Receipt Date: 20110421
  Transmission Date: 20111010
  Serious: Yes (Other)
  Sender: FDA-Public Use
  Company Number: JP-ASTRAZENECA-2011SE24334

PATIENT
  Age: 90 Year

DRUGS (4)
  1. MEROPENEM [Suspect]
     Indication: URINARY TRACT INFECTION
     Route: 042
  2. IMMUNE GLOBULIN INTRAVENOUS (HUMAN) [Concomitant]
  3. CIPROXAN [Concomitant]
     Route: 042
  4. FIRSTCIN [Concomitant]
     Route: 042

REACTIONS (1)
  - HEPATIC FUNCTION ABNORMAL [None]
